FAERS Safety Report 20818226 (Version 1)
Quarter: 2022Q2

REPORT INFORMATION
  Report Type: Spontaneous
  Country: US (occurrence: None)
  Receive Date: 20220511
  Receipt Date: 20220511
  Transmission Date: 20220721
  Serious: Yes (Disabling)
  Sender: FDA-Public Use
  Company Number: None

PATIENT
  Age: 38 Year
  Sex: Male
  Weight: 67.5 kg

DRUGS (1)
  1. NICOTINE [Suspect]
     Active Substance: NICOTINE
     Indication: Nicotine dependence
     Dosage: 1 AN - ASNECESSARY AS NEEDED SUBLINGUAL?
     Route: 060
     Dates: start: 20220101, end: 20220430

REACTIONS (2)
  - Gingival recession [None]
  - Manufacturing materials issue [None]

NARRATIVE: CASE EVENT DATE: 20220101
